FAERS Safety Report 25700293 (Version 7)
Quarter: 2025Q4

REPORT INFORMATION
  Report Type: Report from Study
  Country: CA (occurrence: CA)
  Receive Date: 20250819
  Receipt Date: 20251217
  Transmission Date: 20260118
  Serious: Yes (Other)
  Sender: PFIZER
  Company Number: CA-PFIZER INC-202500164238

PATIENT
  Age: 19 Year
  Sex: Female

DRUGS (8)
  1. ABRILADA [Suspect]
     Active Substance: ADALIMUMAB-AFZB
     Indication: Hidradenitis
     Dosage: 40 MG, WEEKLY, 160MG WEEK 0, 80MG WEEK 2, THEN 40MG Q1WEEK STARTING WEEK 4
     Route: 058
     Dates: start: 20220719
  2. ABRILADA [Suspect]
     Active Substance: ADALIMUMAB-AFZB
     Dosage: 40 MG, WEEKLY, 160MG WEEK 0, 80MG WEEK 2, THEN 40MG Q1WEEK STARTING WEEK 4
     Route: 058
     Dates: start: 20251014
  3. ABRILADA [Suspect]
     Active Substance: ADALIMUMAB-AFZB
     Dosage: 40 MG, 2 WEEKS , (40 MG, EVERY 1 WEEK)
     Route: 058
     Dates: start: 20251028
  4. ABRILADA [Suspect]
     Active Substance: ADALIMUMAB-AFZB
     Dosage: 40 MG, AFTER 1 WEEK
     Route: 058
     Dates: start: 20251104
  5. ABRILADA [Suspect]
     Active Substance: ADALIMUMAB-AFZB
     Dosage: 40 MG, 1 WEEK (PRESCRIBED: 80 MG, WEEKLY)
     Route: 058
     Dates: start: 20251111
  6. ABRILADA [Suspect]
     Active Substance: ADALIMUMAB-AFZB
     Dosage: 80 MG,2 WEEKS (PRESCRIBED: 80 MG, WEEKLY)
     Route: 058
     Dates: start: 20251209
  7. CLINDAMYCIN [Concomitant]
     Active Substance: CLINDAMYCIN
     Dosage: 1 DF, ONGOING,FOR 3 MONTHS,STARTED END OF MAY2022
     Dates: start: 202205, end: 202209
  8. RIFAMPIN [Concomitant]
     Active Substance: RIFAMPIN
     Dosage: 1 DF, ONGOING,FOR 3 MONTHS,STARTED END OF MAY2022
     Dates: start: 202205, end: 202209

REACTIONS (6)
  - Intellectual disability [Unknown]
  - Drug effect less than expected [Unknown]
  - Injection site pain [Unknown]
  - Fatigue [Unknown]
  - Inappropriate schedule of product administration [Unknown]
  - Off label use [Unknown]

NARRATIVE: CASE EVENT DATE: 20251101
